FAERS Safety Report 18986795 (Version 2)
Quarter: 2022Q4

REPORT INFORMATION
  Report Type: Report from Study
  Country: US (occurrence: US)
  Receive Date: 20210309
  Receipt Date: 20221025
  Transmission Date: 20230112
  Serious: No
  Sender: FDA-Public Use
  Company Number: US-KYOWAKIRIN-2021BKK003086

PATIENT

DRUGS (4)
  1. CRYSVITA [Suspect]
     Active Substance: BUROSUMAB-TWZA
     Indication: Phosphorus metabolism disorder
     Dosage: 80 MG, 1X/4 WEEKS ((STRENGTH 20 AND 30 MG/ML COMBINED TO ACHIEVE DOSE OF 80 MG)
     Route: 058
     Dates: start: 20191220
  2. CRYSVITA [Suspect]
     Active Substance: BUROSUMAB-TWZA
     Dosage: 80 MG, 1X/4 WEEKS ((STRENGTH 20 AND 30 MG/ML COMBINED TO ACHIEVE DOSE OF 80 MG)
     Route: 058
     Dates: start: 20191220
  3. CRYSVITA [Suspect]
     Active Substance: BUROSUMAB-TWZA
     Indication: Phosphorus metabolism disorder
     Dosage: 80 MG, 1X/4 WEEKS ((STRENGTH 20 AND 30 MG/ML COMBINED TO ACHIEVE DOSE OF 80 MG)
     Route: 058
     Dates: start: 20191220
  4. CRYSVITA [Suspect]
     Active Substance: BUROSUMAB-TWZA
     Dosage: 80 MG, 1X/4 WEEKS ((STRENGTH 20 AND 30 MG/ML COMBINED TO ACHIEVE DOSE OF 80 MG)
     Route: 058
     Dates: start: 20191220

REACTIONS (3)
  - Inappropriate schedule of product administration [Unknown]
  - Off label use [Unknown]
  - Inappropriate schedule of product administration [Unknown]

NARRATIVE: CASE EVENT DATE: 20210223
